FAERS Safety Report 8552817 (Version 2)
Quarter: 2013Q2

REPORT INFORMATION
  Report Type: Spontaneous
  Country: US (occurrence: None)
  Receive Date: 20120327
  Receipt Date: 20120709
  Transmission Date: 20140414
  Serious: Yes (Other)
  Sender: FDA-Public Use
  Company Number: PHEH2010US02111

PATIENT
  Age: 76 Year
  Sex: Male

DRUGS (10)
  1. GLEEVEC [Suspect]
     Indication: CHRONIC MYELOID LEUKAEMIA
     Route: 048
     Dates: start: 20091116, end: 201106
  2. METFORMIN HYDROCHLORIDE [Suspect]
     Indication: DIABETES MELLITUS
     Route: 048
     Dates: start: 20091116
  3. VITAMINS NOS [Concomitant]
  4. VITAMIN B12 [Concomitant]
  5. PROCHLORPERAZINE [Concomitant]
  6. ALLOPURINOL [Concomitant]
  7. METOPROLOL TARTRATE [Concomitant]
  8. ASPIRIN [Concomitant]
  9. DIOVAN ^CIBA-GEIGY^ (VALSARTAN) [Concomitant]
  10. ZYRTEC [Concomitant]

REACTIONS (6)
  - MUSCLE SPASMS [None]
  - RASH [None]
  - DRY MOUTH [None]
  - SWELLING [None]
  - Periorbital oedema [None]
  - Drug ineffective [None]
